FAERS Safety Report 7703583-9 (Version None)
Quarter: 2011Q3

REPORT INFORMATION
  Report Type: 
  Country: None (occurrence: None)
  Receive Date: 20110823
  Receipt Date: 20110812
  Transmission Date: 20111222
  Serious: Yes (Hospitalization)
  Sender: FDA-Public Use
  Company Number: PHFR2011GB04794

PATIENT
  Age: 43 Year
  Sex: Female
  Weight: 143 kg

DRUGS (1)
  1. CLOZAPINE [Suspect]
     Indication: SCHIZOPHRENIA
     Dosage: 300 MG
     Route: 048
     Dates: start: 20110605, end: 20110704

REACTIONS (9)
  - TACHYCARDIA [None]
  - MALAISE [None]
  - SEPSIS [None]
  - HEPATITIS [None]
  - CHOLANGITIS [None]
  - FIBRIN D DIMER INCREASED [None]
  - HYPOTENSION [None]
  - TACHYPNOEA [None]
  - LIVER FUNCTION TEST ABNORMAL [None]
